FAERS Safety Report 20320179 (Version 1)
Quarter: 2022Q1

REPORT INFORMATION
  Report Type: Spontaneous
  Country: PL (occurrence: PL)
  Receive Date: 20220111
  Receipt Date: 20220111
  Transmission Date: 20220423
  Serious: Yes (Other)
  Sender: FDA-Public Use
  Company Number: PL-SERVIER-S21013651

PATIENT
  Age: 65 Year
  Sex: Male

DRUGS (20)
  1. BISOPROLOL [Suspect]
     Active Substance: BISOPROLOL
     Indication: Product used for unknown indication
     Dosage: 2.5 MILLIGRAM, ONCE A DAY (2.5 MG, QD)
     Route: 065
  2. BISOPROLOL [Suspect]
     Active Substance: BISOPROLOL
     Dosage: 10 MILLIGRAM, ONCE A DAY, (10 MG, QD)
     Route: 065
  3. BISOPROLOL [Suspect]
     Active Substance: BISOPROLOL
     Dosage: 10 MILLIGRAM, ONCE A DAY (5 MG, BID)
     Route: 065
  4. EZETIMIBE [Suspect]
     Active Substance: EZETIMIBE
     Indication: Product used for unknown indication
     Dosage: 10 MILLIGRAM, ONCE A DAY (10 MG, QD)
     Route: 065
  5. IVABRADINE [Suspect]
     Active Substance: IVABRADINE
     Indication: Product used for unknown indication
     Dosage: 10 MILLIGRAM, ONCE A DAY, (10 MG,QD)
     Route: 065
  6. IVABRADINE [Suspect]
     Active Substance: IVABRADINE
     Dosage: 10 MILLIGRAM, ONCE A DAY (5 MG, BID)
     Route: 065
  7. TRANDOLAPRIL [Suspect]
     Active Substance: TRANDOLAPRIL
     Indication: Product used for unknown indication
     Dosage: 2 MILLIGRAM, ONCE A DAY (2 MG, QD)
     Route: 065
  8. OMEGA-3 FATTY ACIDS [Suspect]
     Active Substance: OMEGA-3 FATTY ACIDS
     Indication: Product used for unknown indication
     Dosage: 6 DOSAGE FORM, ONCE A DAY (2 DF, TID)
     Route: 065
  9. OMEGA-3 FATTY ACIDS [Suspect]
     Active Substance: OMEGA-3 FATTY ACIDS
     Dosage: 1 DOSAGE FORM, ONCE A DAY (1 DF, QD)
     Route: 065
  10. OMEGA-3 FATTY ACIDS [Suspect]
     Active Substance: OMEGA-3 FATTY ACIDS
     Dosage: 6 DOSAGE FORM, ONCE A DAY, (2 DOSAGE FORM, TID)
     Route: 065
  11. OMEGA-3 FATTY ACIDS [Suspect]
     Active Substance: OMEGA-3 FATTY ACIDS
     Dosage: UNK, (3 X 1 CAPS)
     Route: 065
  12. OMEGA-3 FATTY ACIDS [Suspect]
     Active Substance: OMEGA-3 FATTY ACIDS
     Dosage: UNK, (3 X 2 CAPS)
     Route: 065
  13. EPLERENONE [Suspect]
     Active Substance: EPLERENONE
     Indication: Product used for unknown indication
     Dosage: 50 MILLIGRAM, ONCE A DAY (50 MG, QD)
     Route: 065
  14. SACUBITRIL\VALSARTAN [Suspect]
     Active Substance: SACUBITRIL\VALSARTAN
     Indication: Product used for unknown indication
     Dosage: 100 MILLIGRAM, ONCE A DAY (50 MG, BID)
     Route: 065
  15. SACUBITRIL\VALSARTAN [Suspect]
     Active Substance: SACUBITRIL\VALSARTAN
     Dosage: 200 MILLIGRAM, ONCE A DAY (100 MG, BID)
     Route: 065
  16. SACUBITRIL\VALSARTAN [Suspect]
     Active Substance: SACUBITRIL\VALSARTAN
     Dosage: 100 MILLIGRAM ,(50 MILLIGRAM, BID)
     Route: 065
  17. SACUBITRIL\VALSARTAN [Suspect]
     Active Substance: SACUBITRIL\VALSARTAN
     Dosage: 200 MILLIGRAM, (200 MG, QD )
     Route: 065
  18. TORSEMIDE [Suspect]
     Active Substance: TORSEMIDE
     Indication: Product used for unknown indication
     Dosage: 20 MILLIGRAM, ONCE A DAY (10 MG, BID)
     Route: 065
  19. TORSEMIDE [Suspect]
     Active Substance: TORSEMIDE
     Dosage: 20 MILLIGRAM, ONCE A DAY (20 MG, QD)
     Route: 065
  20. TORSEMIDE [Suspect]
     Active Substance: TORSEMIDE
     Dosage: 10 MILLIGRAM, ONCE A DAY (10 MG, QD)
     Route: 065

REACTIONS (28)
  - Ventricular arrhythmia [Unknown]
  - Interstitial lung disease [Unknown]
  - Ventricular tachycardia [Unknown]
  - Pulmonary oedema [Unknown]
  - Dyspnoea at rest [Unknown]
  - Cardiac failure [Unknown]
  - Discomfort [Unknown]
  - Body mass index increased [Unknown]
  - Dyspnoea exertional [Unknown]
  - Rales [Unknown]
  - Pallor [Unknown]
  - Pleural effusion [Unknown]
  - Bronchial wall thickening [Unknown]
  - Visual field defect [Unknown]
  - Oedema peripheral [Unknown]
  - Abdominal distension [Unknown]
  - Ventricular extrasystoles [Unknown]
  - Lung opacity [Unknown]
  - Waist circumference increased [Unknown]
  - Asthenia [Unknown]
  - Hypopnoea [Unknown]
  - Palpitations [Unknown]
  - Jugular vein distension [Unknown]
  - Device malfunction [Unknown]
  - Decreased appetite [Unknown]
  - Dizziness [Unknown]
  - Cold sweat [Unknown]
  - Chest X-ray abnormal [Unknown]

NARRATIVE: CASE EVENT DATE: 20191101
